FAERS Safety Report 5939554-2 (Version None)
Quarter: 2008Q4

REPORT INFORMATION
  Report Type: 
  Country: None (occurrence: None)
  Receive Date: 20081029
  Receipt Date: 20081017
  Transmission Date: 20090506
  Serious: Yes (Other)
  Sender: FDA-Public Use
  Company Number: 100#03#2008-05307

PATIENT
  Age: 57 Year
  Sex: Female

DRUGS (2)
  1. VENLAFAXINE HCL [Suspect]
     Indication: DEPRESSION
     Dosage: 75 MG ONCE DAILY ORAL
     Route: 048
     Dates: start: 20020101, end: 20080927
  2. LITHIUM CARBONATE [Concomitant]

REACTIONS (2)
  - EOSINOPHILIA [None]
  - HEPATITIS CHOLESTATIC [None]
